FAERS Safety Report 7474944-0 (Version None)
Quarter: 2011Q2

REPORT INFORMATION
  Report Type: 
  Country: None (occurrence: None)
  Receive Date: 20110509
  Receipt Date: 20110509
  Transmission Date: 20111010
  Serious: No
  Sender: FDA-Public Use
  Company Number: None

PATIENT
  Age: 47 Year
  Sex: Female
  Weight: 98 kg

DRUGS (1)
  1. VERAMYST [Suspect]
     Indication: RHINITIS ALLERGIC
     Dosage: 2 SPRAYS ONCE DAILY NASAL
     Route: 045
     Dates: start: 20090818, end: 20110507

REACTIONS (2)
  - HYPOGEUSIA [None]
  - ANOSMIA [None]
